FAERS Safety Report 8922599 (Version 4)
Quarter: 2013Q3

REPORT INFORMATION
  Report Type: Spontaneous
  Country: GB (occurrence: GB)
  Receive Date: 20121123
  Receipt Date: 20130917
  Transmission Date: 20140515
  Serious: Yes (Other)
  Sender: FDA-Public Use
  Company Number: GB-PFIZER INC-2012292647

PATIENT
  Age: 29 Year
  Sex: Female

DRUGS (2)
  1. AMIODARONE HCL [Suspect]
     Indication: TACHYCARDIA
     Dosage: UNK
     Route: 048
     Dates: start: 2008, end: 20080518
  2. AMIODARONE [Suspect]
     Indication: TACHYCARDIA
     Dosage: UNK
     Route: 042
     Dates: start: 20080428

REACTIONS (1)
  - Electrocardiogram ST segment elevation [Recovered/Resolved]
